FAERS Safety Report 11216810 (Version 7)
Quarter: 2015Q4

REPORT INFORMATION
  Report Type: Report from Study
  Country: CL (occurrence: CL)
  Receive Date: 20150624
  Receipt Date: 20151103
  Transmission Date: 20160304
  Serious: Yes (Life-Threatening, Other)
  Sender: FDA-Public Use
  Company Number: CL-SA-2015SA087596

PATIENT
  Age: 38 Year
  Sex: Female

DRUGS (4)
  1. METHYLPREDNISOLONE. [Concomitant]
     Active Substance: METHYLPREDNISOLONE
     Indication: PREMEDICATION
     Route: 042
     Dates: start: 20150619
  2. LEMTRADA [Suspect]
     Active Substance: ALEMTUZUMAB
     Indication: MULTIPLE SCLEROSIS
     Route: 041
     Dates: start: 20150615, end: 20150619
  3. ERTAPENEM [Concomitant]
     Active Substance: ERTAPENEM
     Indication: URINARY TRACT INFECTION
     Route: 042
     Dates: start: 20150613
  4. EUTIROX [Concomitant]
     Active Substance: LEVOTHYROXINE SODIUM
     Indication: HYPOTHYROIDISM
     Route: 048
     Dates: end: 20151001

REACTIONS (9)
  - Culture urine positive [Not Recovered/Not Resolved]
  - Vision blurred [Recovering/Resolving]
  - Urine analysis abnormal [Not Recovered/Not Resolved]
  - Laryngeal obstruction [Recovered/Resolved]
  - Generalised erythema [Recovered/Resolved]
  - Basedow^s disease [Recovering/Resolving]
  - Eyelid oedema [Recovered/Resolved]
  - Rash [Unknown]
  - Urinary tract infection [Unknown]

NARRATIVE: CASE EVENT DATE: 2015
